FAERS Safety Report 4821087-8 (Version None)
Quarter: 2005Q4

REPORT INFORMATION
  Report Type: 
  Country: None (occurrence: None)
  Receive Date: 20051104
  Receipt Date: 20041221
  Transmission Date: 20060501
  Serious: Yes (Hospitalization, Disabling)
  Sender: FDA-Public Use
  Company Number: US-MERCK-0412USA02685

PATIENT
  Age: 47 Year
  Sex: Male
  Weight: 95 kg

DRUGS (1)
  1. VIOXX [Suspect]
     Indication: RHEUMATOID ARTHRITIS
     Route: 048
     Dates: start: 20020402, end: 20041001

REACTIONS (4)
  - ACUTE MYOCARDIAL INFARCTION [None]
  - EMOTIONAL DISTRESS [None]
  - HYPERCHOLESTEROLAEMIA [None]
  - HYPERTENSION [None]
